FAERS Safety Report 10475225 (Version 1)
Quarter: 2014Q3

REPORT INFORMATION
  Report Type: Spontaneous
  Country: US (occurrence: None)
  Receive Date: 20140924
  Receipt Date: 20140924
  Transmission Date: 20150326
  Serious: Yes (Hospitalization)
  Sender: FDA-Public Use
  Company Number: None

PATIENT
  Age: 69 Year
  Sex: Male
  Weight: 76.4 kg

DRUGS (11)
  1. ALDACTONE [Suspect]
     Active Substance: SPIRONOLACTONE
     Indication: HYPERTENSION
     Route: 048
  2. MAG OX [Concomitant]
     Active Substance: MAGNESIUM OXIDE
  3. LEVEMIR [Concomitant]
     Active Substance: INSULIN DETEMIR
  4. LASIX [Concomitant]
     Active Substance: FUROSEMIDE
  5. VITAMIN D [Concomitant]
     Active Substance: CHOLECALCIFEROL
  6. VITAMIN B12 [Concomitant]
     Active Substance: CYANOCOBALAMIN
  7. BENICAR [Suspect]
     Active Substance: OLMESARTAN MEDOXOMIL
     Indication: HYPERTENSION
     Route: 048
  8. NIASPAN [Concomitant]
     Active Substance: NIACIN
  9. SERTRALINE [Concomitant]
     Active Substance: SERTRALINE HYDROCHLORIDE
  10. CARVEDILOL. [Concomitant]
     Active Substance: CARVEDILOL
  11. PROTONIX [Concomitant]
     Active Substance: PANTOPRAZOLE SODIUM

REACTIONS (11)
  - Renal failure acute [None]
  - Sepsis [None]
  - Hypovolaemia [None]
  - Escherichia bacteraemia [None]
  - Gait disturbance [None]
  - Escherichia urinary tract infection [None]
  - Hyperkalaemia [None]
  - Dehydration [None]
  - Pancytopenia [None]
  - Diarrhoea [None]
  - Catheter site haemorrhage [None]

NARRATIVE: CASE EVENT DATE: 20140224
